FAERS Safety Report 5847897-6 (Version None)
Quarter: 2008Q3

REPORT INFORMATION
  Report Type: 
  Country: None (occurrence: None)
  Receive Date: 20080814
  Receipt Date: 20080813
  Transmission Date: 20090109
  Serious: Yes (Hospitalization)
  Sender: FDA-Public Use
  Company Number: 2008SP010486

PATIENT
  Age: 64 Year
  Sex: Male

DRUGS (3)
  1. INTRON A [Suspect]
     Indication: HEPATITIS C
     Dosage: 10 MIU; TIW; IM
     Route: 030
     Dates: start: 20051001, end: 20060801
  2. REBETOL [Suspect]
     Indication: HEPATITIS C
     Dosage: 600 MG; QD; PO
     Route: 048
     Dates: start: 20051001, end: 20060801
  3. LEVOTHYROXINE SODIUM [Concomitant]

REACTIONS (6)
  - ERYTHEMA [None]
  - FISTULA [None]
  - INCORRECT ROUTE OF DRUG ADMINISTRATION [None]
  - INJECTION SITE ULCER [None]
  - PAIN OF SKIN [None]
  - SWELLING [None]
